FAERS Safety Report 22632601 (Version 1)
Quarter: 2023Q2

REPORT INFORMATION
  Report Type: Other
  Country: CA (occurrence: CA)
  Receive Date: 20230623
  Receipt Date: 20230623
  Transmission Date: 20230721
  Serious: Yes (Other)
  Sender: FDA-Public Use
  Company Number: CA-ASTELLAS-2023US018709

PATIENT
  Sex: Male

DRUGS (1)
  1. SOLIFENACIN [Suspect]
     Active Substance: SOLIFENACIN
     Indication: Product used for unknown indication
     Route: 065

REACTIONS (5)
  - Eye pain [Unknown]
  - Angle closure glaucoma [Unknown]
  - Intraocular pressure increased [Unknown]
  - Libido decreased [Unknown]
  - Retrograde ejaculation [Unknown]
